FAERS Safety Report 5655663-X (Version None)
Quarter: 2008Q1

REPORT INFORMATION
  Report Type: 
  Country: None (occurrence: None)
  Receive Date: 20080307
  Receipt Date: 20080228
  Transmission Date: 20080703
  Serious: Yes (Death, Hospitalization)
  Sender: FDA-Public Use
  Company Number: US-GENENTECH-256931

PATIENT
  Sex: Female
  Weight: 23.5 kg

DRUGS (9)
  1. SOMATROPIN [Suspect]
     Indication: HYPOPITUITARISM
     Dosage: 0.45 MG, 7/WEEK
     Route: 058
     Dates: start: 20020101
  2. SOMATROPIN [Suspect]
     Indication: SEPTO-OPTIC DYSPLASIA
  3. SOMATROPIN [Suspect]
     Indication: DEVELOPMENTAL DELAY
  4. SOMATROPIN [Suspect]
     Indication: CONVULSION
  5. PHENOBARB [Concomitant]
     Indication: DRUG USE FOR UNKNOWN INDICATION
     Dosage: 80 MG, QD
     Route: 048
  6. LEVOXYL [Concomitant]
     Indication: DRUG USE FOR UNKNOWN INDICATION
  7. DDAVP (NEEDS NO REFRIGERATION) [Concomitant]
     Indication: DRUG USE FOR UNKNOWN INDICATION
  8. CORTEF [Concomitant]
     Indication: DRUG USE FOR UNKNOWN INDICATION
  9. ZANTAC [Concomitant]
     Indication: DRUG USE FOR UNKNOWN INDICATION

REACTIONS (3)
  - CARDIAC ARREST [None]
  - NERVOUS SYSTEM DISORDER [None]
  - RESPIRATORY SYNCYTIAL VIRUS INFECTION [None]
